FAERS Safety Report 15549851 (Version 5)
Quarter: 2019Q3

REPORT INFORMATION
  Report Type: Report from Study
  Country: US (occurrence: US)
  Receive Date: 20181025
  Receipt Date: 20190702
  Transmission Date: 20191004
  Serious: Yes (Other)
  Sender: FDA-Public Use
  Company Number: PHEH2018US044281

PATIENT
  Sex: Male

DRUGS (1)
  1. NEORAL [Suspect]
     Active Substance: CYCLOSPORINE
     Indication: PRODUCT USED FOR UNKNOWN INDICATION
     Route: 065

REACTIONS (8)
  - Renal failure [Unknown]
  - Dilatation intrahepatic duct congenital [Unknown]
  - Renal mass [Unknown]
  - Liver disorder [Unknown]
  - Malaise [Unknown]
  - Nephropathy [Unknown]
  - Cardiac disorder [Unknown]
  - Lung disorder [Unknown]
